FAERS Safety Report 5594542-3 (Version None)
Quarter: 2008Q1

REPORT INFORMATION
  Report Type: 
  Country: None (occurrence: None)
  Receive Date: 20080115
  Receipt Date: 20071231
  Transmission Date: 20080703
  Serious: Yes (Other)
  Sender: FDA-Public Use
  Company Number: AECAN200800007

PATIENT
  Age: 57 Year
  Sex: Male

DRUGS (6)
  1. IGIV (MANUFACTURER UNKNOWN) (IMMUNE GLOBULIN IV (HUMAN), CAPRYLATE/CHR [Suspect]
     Indication: DRUG USE FOR UNKNOWN INDICATION
     Dosage: Q2M; IV
     Route: 042
  2. AZATHIOPRINE [Concomitant]
  3. CYTOXAN [Concomitant]
  4. LIPITOR [Concomitant]
  5. METHOTREXATE [Concomitant]
  6. NIACIN [Concomitant]

REACTIONS (1)
  - CEREBROVASCULAR ACCIDENT [None]
